FAERS Safety Report 14979183 (Version 2)
Quarter: 2021Q1

REPORT INFORMATION
  Report Type: Spontaneous
  Country: PT (occurrence: PT)
  Receive Date: 20180606
  Receipt Date: 20210324
  Transmission Date: 20210419
  Serious: Yes (Other)
  Sender: FDA-Public Use
  Company Number: PT-AUROBINDO-AUR-APL-2018-030893

PATIENT
  Age: 55 Year
  Sex: Male

DRUGS (10)
  1. LINEZOLID. [Suspect]
     Active Substance: LINEZOLID
     Indication: PYREXIA
     Dosage: ()
     Route: 065
  2. PYRAZINAMIDE. [Suspect]
     Active Substance: PYRAZINAMIDE
     Indication: TUBERCULOSIS
     Dosage: ()
     Route: 065
  3. STREPTOMYCIN [Suspect]
     Active Substance: STREPTOMYCIN SULFATE
     Indication: TUBERCULOSIS
     Dosage: ()
     Route: 065
  4. LEVOFLOXACIN. [Suspect]
     Active Substance: LEVOFLOXACIN
     Indication: TUBERCULOSIS
     Dosage: UNK
     Route: 065
  5. ISONIAZID. [Suspect]
     Active Substance: ISONIAZID
     Indication: TUBERCULOSIS
     Dosage: ()
     Route: 065
  6. CYCLOSERINE. [Suspect]
     Active Substance: CYCLOSERINE
     Indication: TUBERCULOSIS
     Dosage: ()
     Route: 065
  7. RIFAMPICIN [Suspect]
     Active Substance: RIFAMPIN
     Indication: TUBERCULOSIS
     Dosage: ()
     Route: 065
  8. ETHAMBUTOL [Suspect]
     Active Substance: ETHAMBUTOL HYDROCHLORIDE
     Indication: TUBERCULOSIS
     Dosage: ()
     Route: 065
  9. AMIKACIN. [Suspect]
     Active Substance: AMIKACIN
     Indication: PYREXIA
     Dosage: ()
     Route: 065
  10. PARA?AMINOSALICYLIC ACID [Suspect]
     Active Substance: AMINOSALICYLIC ACID
     Indication: PYREXIA
     Dosage: ()
     Route: 065

REACTIONS (1)
  - Tuberculosis [Recovered/Resolved]
